FAERS Safety Report 24601410 (Version 2)
Quarter: 2024Q4

REPORT INFORMATION
  Report Type: Spontaneous
  Country: US (occurrence: US)
  Receive Date: 20241111
  Receipt Date: 20241112
  Transmission Date: 20250115
  Serious: No
  Sender: ROCHE
  Company Number: US-ROCHE-10000126776

PATIENT
  Sex: Female

DRUGS (1)
  1. XOLAIR [Suspect]
     Active Substance: OMALIZUMAB
     Indication: Hypersensitivity
     Route: 065
     Dates: start: 2024

REACTIONS (3)
  - Anxiety [Unknown]
  - Palpitations [Unknown]
  - Intrusive thoughts [Unknown]

NARRATIVE: CASE EVENT DATE: 20240101
